FAERS Safety Report 4279672-0 (Version None)
Quarter: 2004Q1

REPORT INFORMATION
  Report Type: 
  Country: None (occurrence: None)
  Receive Date: 20040127
  Receipt Date: 20040127
  Transmission Date: 20041129
  Serious: Yes (Hospitalization)
  Sender: FDA-Public Use
  Company Number: None

PATIENT
  Age: 58 Year
  Sex: Male

DRUGS (8)
  1. CELEBREX [Suspect]
     Dosage: 400 MG BID ORAL
     Route: 048
     Dates: start: 20030722, end: 20031231
  2. METOPROLOL [Concomitant]
  3. DOCUSATE [Concomitant]
  4. LOVASTATIN [Concomitant]
  5. LEVAQUIN [Concomitant]
  6. PREDNISONE [Concomitant]
  7. COMBIVENT [Concomitant]
  8. FLUNISOLIDE [Concomitant]

REACTIONS (5)
  - DISEASE RECURRENCE [None]
  - EMPYEMA [None]
  - OBLITERATIVE BRONCHIOLITIS [None]
  - PNEUMONIA [None]
  - POST PROCEDURAL HAEMORRHAGE [None]
